FAERS Safety Report 7676500-8 (Version None)
Quarter: 2011Q3

REPORT INFORMATION
  Report Type: 
  Country: None (occurrence: None)
  Receive Date: 20110811
  Receipt Date: 20110801
  Transmission Date: 20111222
  Serious: Yes (Other)
  Sender: FDA-Public Use
  Company Number: DE-UCBSA-038300

PATIENT
  Age: 59 Year
  Sex: Female

DRUGS (2)
  1. VIMPAT [Suspect]
     Dosage: 2X100 MG
  2. VIMPAT [Suspect]
     Dosage: 15MG/ML

REACTIONS (2)
  - WRONG TECHNIQUE IN DRUG USAGE PROCESS [None]
  - CONVULSION [None]
